FAERS Safety Report 8992647 (Version 1)
Quarter: 2013Q1

REPORT INFORMATION
  Report Type: Spontaneous
  Country: US (occurrence: US)
  Receive Date: 20130101
  Receipt Date: 20130101
  Transmission Date: 20140127
  Serious: Yes (Hospitalization, Other)
  Sender: FDA-Public Use
  Company Number: PHEH2012US025121

PATIENT
  Sex: Female

DRUGS (3)
  1. VALSARTAN + HCT [Suspect]
     Dosage: 1 DF (320 MG VALS/ 21.5 MG HCTZ), UNK
  2. ATENOLOL [Concomitant]
  3. POTASSIUM [Concomitant]

REACTIONS (3)
  - Dizziness [Unknown]
  - Joint injury [Unknown]
  - Blood pressure increased [Unknown]
